FAERS Safety Report 6496711-7 (Version None)
Quarter: 2009Q4

REPORT INFORMATION
  Report Type: 
  Country: None (occurrence: None)
  Receive Date: 20091211
  Receipt Date: 20091118
  Transmission Date: 20100525
  Serious: Yes (Other)
  Sender: FDA-Public Use
  Company Number: AVE_01010_2009

PATIENT
  Sex: Male
  Weight: 72.4 kg

DRUGS (13)
  1. CLONIDINE [Suspect]
     Indication: HYPERTENSION
     Dosage: (0.6 MG QD, VIA 2/WEEKLY PATCHES TRANSDERMAL)
     Route: 062
     Dates: start: 20090901, end: 20090101
  2. SANDIMMUNE [Concomitant]
  3. LOSARTAN [Concomitant]
  4. ERGOCALCIFEROL [Concomitant]
  5. LABETALOL HCL [Concomitant]
  6. BACTRIM [Concomitant]
  7. MINOXIDIL [Concomitant]
  8. ARANESP [Concomitant]
  9. ASPIRIN [Concomitant]
  10. ALLOPURINOL [Concomitant]
  11. LANSOPRAZOLE [Concomitant]
  12. PERCOCET [Concomitant]
  13. SIMVASTATIN [Concomitant]

REACTIONS (9)
  - CONDITION AGGRAVATED [None]
  - DRUG DOSE OMISSION [None]
  - DRUG WITHDRAWAL SYNDROME [None]
  - HEADACHE [None]
  - HYPERTENSION [None]
  - OEDEMA PERIPHERAL [None]
  - PRODUCT ADHESION ISSUE [None]
  - PRODUCT SUBSTITUTION ISSUE [None]
  - WITHDRAWAL SYNDROME [None]
